FAERS Safety Report 7243083-6 (Version None)
Quarter: 2011Q1

REPORT INFORMATION
  Report Type: 
  Country: None (occurrence: None)
  Receive Date: 20110125
  Receipt Date: 20110122
  Transmission Date: 20110831
  Serious: Yes (Other)
  Sender: FDA-Public Use
  Company Number: CZ-AMGEN-CZESP2011001111

PATIENT
  Age: 8 Year
  Sex: Female
  Weight: 32 kg

DRUGS (5)
  1. NPLATE [Suspect]
     Dosage: 6.2 A?G/KG, QWK
     Dates: start: 20101216
  2. NPLATE [Suspect]
     Dosage: 200 A?G, UNK
     Dates: start: 20101217
  3. IMURAN [Concomitant]
     Indication: IDIOPATHIC THROMBOCYTOPENIC PURPURA
     Dosage: 1.5 MG/KG, QD
     Dates: start: 20100525, end: 20100903
  4. NPLATE [Suspect]
     Indication: IDIOPATHIC THROMBOCYTOPENIC PURPURA
     Dosage: 7.8 A?G/KG, QWK
     Route: 058
     Dates: start: 20100723
  5. NPLATE [Suspect]
     Dosage: 7.8 A?G/KG, QWK
     Dates: start: 20110106

REACTIONS (4)
  - HAEMATOMA [None]
  - OFF LABEL USE [None]
  - PETECHIAE [None]
  - THERAPEUTIC RESPONSE DECREASED [None]
